APPROVED DRUG PRODUCT: HYDROCORTISONE ACETATE
Active Ingredient: HYDROCORTISONE ACETATE
Strength: 1%
Dosage Form/Route: CREAM;TOPICAL
Application: A080419 | Product #001
Applicant: HR CENCI LABORATORIES INC
Approved: Jan 25, 1982 | RLD: No | RS: No | Type: DISCN